FAERS Safety Report 9807793 (Version 1)
Quarter: 2014Q1

REPORT INFORMATION
  Report Type: Spontaneous
  Country: GB (occurrence: GB)
  Receive Date: 20140110
  Receipt Date: 20140110
  Transmission Date: 20141002
  Serious: Yes (Other)
  Sender: FDA-Public Use
  Company Number: GB-AMGEN-GBRSP2014000961

PATIENT
  Age: 60 Year
  Sex: Female
  Weight: 90 kg

DRUGS (4)
  1. PROLIA [Suspect]
     Indication: OSTEOPOROTIC FRACTURE
     Dosage: 60 MG, UNK
     Route: 058
     Dates: start: 20130122, end: 20131230
  2. AMITRIPTYLINE [Concomitant]
  3. ATORVASTATIN [Concomitant]
  4. WARFARIN [Concomitant]

REACTIONS (2)
  - Diarrhoea [Recovered/Resolved]
  - Onychomadesis [Recovering/Resolving]
